FAERS Safety Report 5959298-0 (Version None)
Quarter: 2008Q4

REPORT INFORMATION
  Report Type: 
  Country: None (occurrence: None)
  Receive Date: 20081120
  Receipt Date: 20081117
  Transmission Date: 20090506
  Serious: Yes (Other)
  Sender: FDA-Public Use
  Company Number: FR-BRISTOL-MYERS SQUIBB COMPANY-14408470

PATIENT
  Age: 1 Decade
  Sex: Female

DRUGS (4)
  1. DIDANOSINE [Suspect]
     Route: 064
  2. RITONAVIR [Suspect]
     Route: 064
  3. LAMIVUDINE [Suspect]
     Route: 064
  4. NEVIRAPINE [Suspect]

REACTIONS (2)
  - PREGNANCY [None]
  - RETINOBLASTOMA UNILATERAL [None]
